FAERS Safety Report 19724186 (Version 1)
Quarter: 2021Q3

REPORT INFORMATION
  Report Type: Spontaneous
  Country: US (occurrence: US)
  Receive Date: 20210820
  Receipt Date: 20210820
  Transmission Date: 20211014
  Serious: Yes (Hospitalization)
  Sender: FDA-Public Use
  Company Number: US-CHIESI-2021CHF04055

PATIENT
  Sex: Female

DRUGS (4)
  1. PULMOZYME [Concomitant]
     Active Substance: DORNASE ALFA
     Indication: PRODUCT USED FOR UNKNOWN INDICATION
     Dosage: UNK
  2. BETHKIS [Suspect]
     Active Substance: TOBRAMYCIN
     Indication: OFF LABEL USE
  3. BETHKIS [Suspect]
     Active Substance: TOBRAMYCIN
     Indication: CYSTIC FIBROSIS GASTROINTESTINAL DISEASE
     Dosage: 1 DOSAGE FORM, BID
     Route: 055
  4. BETHKIS [Suspect]
     Active Substance: TOBRAMYCIN
     Indication: PANCREATIC DISORDER

REACTIONS (2)
  - Off label use [Recovered/Resolved]
  - Steroid therapy [Recovering/Resolving]
